FAERS Safety Report 8833718 (Version 5)
Quarter: 2013Q1

REPORT INFORMATION
  Report Type: Spontaneous
  Country: US (occurrence: US)
  Receive Date: 20121010
  Receipt Date: 20130301
  Transmission Date: 20140127
  Serious: No
  Sender: FDA-Public Use
  Company Number: US-009507513-1209USA010854

PATIENT
  Age: 65 None
  Sex: Female

DRUGS (2)
  1. PEGINTRON [Suspect]
     Indication: HEPATITIS C
     Dosage: REDIPEN
     Dates: start: 20120916
  2. RIBAVIRIN [Suspect]
     Indication: HEPATITIS C
     Dosage: UNK
     Dates: start: 20120916

REACTIONS (13)
  - Nausea [Unknown]
  - Myalgia [Unknown]
  - White blood cell count decreased [Unknown]
  - Drug dose omission [Unknown]
  - Nausea [Unknown]
  - Fatigue [Unknown]
  - Constipation [Unknown]
  - Leukopenia [Unknown]
  - Anaemia [Unknown]
  - Anaemia [Unknown]
  - Dry skin [Unknown]
  - Pruritus [Unknown]
  - Skin disorder [Unknown]
